FAERS Safety Report 10205662 (Version 1)
Quarter: 2014Q2

REPORT INFORMATION
  Report Type: Spontaneous
  Country: US (occurrence: US)
  Receive Date: 20140529
  Receipt Date: 20140529
  Transmission Date: 20141212
  Serious: No
  Sender: FDA-Public Use
  Company Number: US-ASTRAZENECA-2014SE34741

PATIENT
  Age: 69 Year
  Sex: Female
  Weight: 51.7 kg

DRUGS (1)
  1. SYMBICORT [Suspect]
     Indication: CHRONIC OBSTRUCTIVE PULMONARY DISEASE
     Dosage: 160/4.5 MCG, 2 PUFFS ,TWO TIMES A DAY
     Route: 055
     Dates: start: 20140508

REACTIONS (5)
  - Memory impairment [Unknown]
  - Chest discomfort [Unknown]
  - Chest discomfort [Unknown]
  - Device misuse [Unknown]
  - Circumstance or information capable of leading to medication error [Unknown]
